FAERS Safety Report 11909937 (Version 1)
Quarter: 2016Q1

REPORT INFORMATION
  Report Type: Spontaneous
  Country: US (occurrence: US)
  Receive Date: 20160112
  Receipt Date: 20160112
  Transmission Date: 20160526
  Serious: No
  Sender: FDA-Public Use
  Company Number: US-ASTRAZENECA-2015SE30230

PATIENT
  Age: 22870 Day
  Sex: Male
  Weight: 88.9 kg

DRUGS (1)
  1. BYDUREON [Suspect]
     Active Substance: EXENATIDE
     Indication: DIABETES MELLITUS
     Route: 062
     Dates: start: 20150226, end: 20150317

REACTIONS (3)
  - Injection site reaction [Recovering/Resolving]
  - Drug dose omission [Unknown]
  - Drug administration error [Unknown]

NARRATIVE: CASE EVENT DATE: 20150226
